FAERS Safety Report 14011048 (Version 1)
Quarter: 2017Q3

REPORT INFORMATION
  Report Type: Spontaneous
  Country: US (occurrence: US)
  Receive Date: 20170925
  Receipt Date: 20170925
  Transmission Date: 20171128
  Serious: No
  Sender: FDA-Public Use
  Company Number: None

PATIENT
  Age: 68 Year
  Sex: Male
  Weight: 108 kg

DRUGS (5)
  1. VENLAFAXINE XR CAP, 37.5 MG [Suspect]
     Active Substance: VENLAFAXINE HYDROCHLORIDE
     Indication: BACK PAIN
     Dosage: ?          QUANTITY:90 CAPSULE(S);?
     Route: 048
     Dates: start: 20170401, end: 20170901
  2. CPAP [Concomitant]
     Active Substance: DEVICE
  3. HEARING AIDS [Concomitant]
  4. ATORVASTATIN [Concomitant]
     Active Substance: ATORVASTATIN
  5. PROBIOTIC [Concomitant]
     Active Substance: PROBIOTICS NOS

REACTIONS (6)
  - Feeling abnormal [None]
  - Product substitution issue [None]
  - Back pain [None]
  - Arthralgia [None]
  - Tinnitus [None]
  - Drug dose omission [None]

NARRATIVE: CASE EVENT DATE: 20170901
